FAERS Safety Report 7424472-3 (Version None)
Quarter: 2011Q2

REPORT INFORMATION
  Report Type: 
  Country: None (occurrence: None)
  Receive Date: 20110419
  Receipt Date: 20110405
  Transmission Date: 20111010
  Serious: Yes (Other)
  Sender: FDA-Public Use
  Company Number: FR-CELGENEUS-056-21880-11040627

PATIENT
  Sex: Female

DRUGS (6)
  1. REVLIMID [Suspect]
     Dosage: 5 MILLIGRAM
     Route: 048
     Dates: start: 20071129, end: 20071203
  2. TRANDOLAPRIL [Concomitant]
     Route: 048
     Dates: start: 19971001
  3. DILTIAZEM [Concomitant]
     Route: 048
     Dates: start: 19971001
  4. REVLIMID [Suspect]
     Dosage: 10 MILLIGRAM
     Route: 048
     Dates: start: 20070816, end: 20071128
  5. IMOVANE [Concomitant]
     Indication: INSOMNIA
     Route: 048
     Dates: start: 20020401
  6. REVLIMID [Suspect]
     Indication: MULTIPLE MYELOMA
     Dosage: 25 MILLIGRAM
     Route: 048
     Dates: start: 20070619, end: 20070806

REACTIONS (1)
  - BREAST CANCER [None]
